FAERS Safety Report 8699758 (Version 3)
Quarter: 2014Q1

REPORT INFORMATION
  Report Type: Report from Study
  Country: JP (occurrence: JP)
  Receive Date: 20120802
  Receipt Date: 20140127
  Transmission Date: 20141002
  Serious: Yes (Other)
  Sender: FDA-Public Use
  Company Number: JP-PFIZER INC-2012158908

PATIENT
  Age: 11 Year
  Sex: Male
  Weight: 46.9 kg

DRUGS (10)
  1. BENEFIX [Suspect]
     Indication: FACTOR IX DEFICIENCY
     Dosage: 2000 IU, 1X/DAY (7 TIMES WEEKLY)
     Route: 042
     Dates: start: 20100721
  2. TRANSAMIN [Concomitant]
     Indication: HAEMORRHAGE
     Dosage: 500 MG, 2X/DAY
     Route: 048
     Dates: start: 20031018
  3. LONGES [Concomitant]
     Indication: GLOMERULONEPHRITIS MEMBRANOUS
     Dosage: 10 MG, 1X/DAY
     Route: 048
     Dates: start: 20080504
  4. LONGES [Concomitant]
     Indication: HAEMATURIA
  5. LONGES [Concomitant]
     Indication: PROTEINURIA
  6. ALFAROL [Concomitant]
     Dosage: 0.25 UG, 1X/DAY
     Route: 048
     Dates: start: 20080610, end: 20101110
  7. PREDONINE [Concomitant]
     Indication: GLOMERULONEPHRITIS MEMBRANOUS
     Dosage: 20 TO 2.5 MG, 1 TO 3 TIMES DAILY
     Route: 048
     Dates: start: 20080605, end: 20101110
  8. PREDONINE [Concomitant]
     Indication: HAEMATURIA
  9. PREDONINE [Concomitant]
     Indication: PROTEINURIA
  10. GASTER [Concomitant]
     Dosage: 10 MG, 2X/DAY
     Route: 048
     Dates: start: 20080610, end: 20101110

REACTIONS (1)
  - Anti factor IX antibody positive [Not Recovered/Not Resolved]
